FAERS Safety Report 6880383-3 (Version None)
Quarter: 2010Q3

REPORT INFORMATION
  Report Type: 
  Country: None (occurrence: None)
  Receive Date: 20100727
  Receipt Date: 20100716
  Transmission Date: 20110219
  Serious: Yes (Other)
  Sender: FDA-Public Use
  Company Number: A0750790A

PATIENT
  Age: 78 Year
  Sex: Male

DRUGS (10)
  1. AVODART [Suspect]
     Indication: BENIGN PROSTATIC HYPERPLASIA
     Dosage: .5MG PER DAY
     Route: 048
     Dates: start: 20040301
  2. FLOMAX [Concomitant]
  3. LORAZEPAM [Concomitant]
  4. HYDROCHLOROTHIAZIDE [Concomitant]
  5. LOPRESSOR [Concomitant]
  6. FISH OIL [Concomitant]
  7. VITAMIN TAB [Concomitant]
  8. POTASSIUM [Concomitant]
  9. PRILOSEC [Concomitant]
  10. PROBIOTIC [Concomitant]

REACTIONS (11)
  - ABDOMINAL DISCOMFORT [None]
  - ABDOMINAL SYMPTOM [None]
  - BREAST ENLARGEMENT [None]
  - GASTRIC DISORDER [None]
  - HYPERHIDROSIS [None]
  - HYPOMETABOLISM [None]
  - ILL-DEFINED DISORDER [None]
  - NAUSEA [None]
  - NEUROPATHY PERIPHERAL [None]
  - RASH [None]
  - WEIGHT INCREASED [None]
